FAERS Safety Report 6316513-1 (Version None)
Quarter: 2009Q3

REPORT INFORMATION
  Report Type: 
  Country: None (occurrence: None)
  Receive Date: 20090820
  Receipt Date: 20090813
  Transmission Date: 20100115
  Serious: Yes (Other)
  Sender: FDA-Public Use
  Company Number: GB-WATSON-2009-06587

PATIENT
  Age: 92 Year
  Sex: Male
  Weight: 67 kg

DRUGS (1)
  1. GENTAMICIN SULFATE (WATSON LABORATORIES) [Suspect]
     Indication: ANTIBIOTIC PROPHYLAXIS
     Dosage: 200 MG, DAILY

REACTIONS (8)
  - BLOOD PRESSURE INCREASED [None]
  - CHILLS [None]
  - CYTOKINE RELEASE SYNDROME [None]
  - HEART RATE INCREASED [None]
  - HYPERTHERMIA [None]
  - HYPERVENTILATION [None]
  - METABOLIC ACIDOSIS [None]
  - PRODUCT CONTAMINATION MICROBIAL [None]
